FAERS Safety Report 16529514 (Version 1)
Quarter: 2019Q3

REPORT INFORMATION
  Report Type: Spontaneous
  Country: GB (occurrence: GB)
  Receive Date: 20190703
  Receipt Date: 20190703
  Transmission Date: 20191004
  Serious: Yes (Hospitalization)
  Sender: FDA-Public Use
  Company Number: GB-009507513-1907GBR001513

PATIENT
  Age: 79 Year
  Sex: Female

DRUGS (4)
  1. ALENDRONATE SODIUM. [Suspect]
     Active Substance: ALENDRONATE SODIUM
     Dosage: 70 MILLIGRAM, QW
     Route: 048
     Dates: end: 20190605
  2. IBUPROFEN. [Suspect]
     Active Substance: IBUPROFEN
     Dosage: 200 MILLIGRAM, PRN (ALSO REPORTED AS 200MG-400MG THREE TIMES DAILY)
     Route: 048
     Dates: end: 20190605
  3. CALCIUM PHOSPHATE, DIBASIC (+) CHOLECALCIFEROL [Concomitant]
     Dosage: 2 DOSAGE FORM, QD, ALSO REPORTED AS COLECALCIFEROL 400UNIT / CALCIUM CARBONATE 1.5G
     Route: 048
  4. ATORVASTATIN [Concomitant]
     Active Substance: ATORVASTATIN
     Dosage: 20 MILLIGRAM, QD
     Route: 048

REACTIONS (3)
  - Iron deficiency anaemia [Recovering/Resolving]
  - Melaena [Unknown]
  - Gastrointestinal haemorrhage [Unknown]

NARRATIVE: CASE EVENT DATE: 20190602
